FAERS Safety Report 7824295-7 (Version None)
Quarter: 2011Q4

REPORT INFORMATION
  Report Type: 
  Country: None (occurrence: None)
  Receive Date: 20111019
  Receipt Date: 20111013
  Transmission Date: 20120403
  Serious: Yes (Hospitalization)
  Sender: FDA-Public Use
  Company Number: US-VERTEX PHARMACEUTICALS INC.-AE-2011-001260

PATIENT
  Sex: Male

DRUGS (6)
  1. LISINOPRIL [Concomitant]
  2. HYDROCHLOROTHIAZIDE [Concomitant]
  3. ROSUVASTATIN [Concomitant]
  4. INCIVEK [Suspect]
     Indication: HEPATITIS C
     Dates: start: 20110101
  5. PEGINTERFERON [Concomitant]
     Indication: HEPATITIS C
  6. RIBAVIRIN [Concomitant]
     Indication: HEPATITIS C

REACTIONS (2)
  - HYPOCALCAEMIA [None]
  - HYPONATRAEMIA [None]
